FAERS Safety Report 25414916 (Version 1)
Quarter: 2025Q2

REPORT INFORMATION
  Report Type: Report from Study
  Country: NZ (occurrence: NZ)
  Receive Date: 20250609
  Receipt Date: 20250609
  Transmission Date: 20250716
  Serious: Yes (Hospitalization, Other)
  Sender: ASTELLAS
  Company Number: NZ-ASTELLAS-2025-AER-028809

PATIENT
  Age: 33 Year
  Sex: Female

DRUGS (2)
  1. TACROLIMUS [Suspect]
     Active Substance: TACROLIMUS
     Indication: Liver transplant
     Route: 065
  2. METHYLPREDNISOLONE [Concomitant]
     Active Substance: METHYLPREDNISOLONE
     Indication: Transplant rejection
     Route: 065
     Dates: start: 2022, end: 2022

REACTIONS (3)
  - Toxicity to various agents [Recovering/Resolving]
  - Cytomegalovirus infection [Recovering/Resolving]
  - Enteritis [Recovering/Resolving]

NARRATIVE: CASE EVENT DATE: 20220101
